FAERS Safety Report 12943056 (Version 6)
Quarter: 2017Q2

REPORT INFORMATION
  Report Type: Report from Study
  Country: BR (occurrence: BR)
  Receive Date: 20161115
  Receipt Date: 20170410
  Transmission Date: 20170830
  Serious: Yes (Other)
  Sender: FDA-Public Use
  Company Number: PHHY2016BR144814

PATIENT
  Age: 37 Year
  Sex: Female
  Weight: 49 kg

DRUGS (4)
  1. EXJADE [Suspect]
     Active Substance: DEFERASIROX
     Indication: SICKLE CELL ANAEMIA
     Dosage: 1750 MG, QD (1 OF 250MG AND 12 OF 125MG)
     Route: 048
     Dates: start: 20160719, end: 201610
  2. ENALAPRIL [Concomitant]
     Active Substance: ENALAPRIL
     Indication: PROTEIN URINE PRESENT
     Dosage: 1 DF, QD
     Route: 048
  3. HYDREA [Concomitant]
     Active Substance: HYDROXYUREA
     Indication: PRODUCT USED FOR UNKNOWN INDICATION
     Dosage: 500 MG, BID
     Route: 065
  4. CERAZETTE [Concomitant]
     Active Substance: DESOGESTREL
     Indication: PRODUCT USED FOR UNKNOWN INDICATION
     Dosage: UNK
     Route: 065
     Dates: end: 201701

REACTIONS (10)
  - Menstruation delayed [Unknown]
  - Skin ulcer [Recovering/Resolving]
  - Leiomyoma [Unknown]
  - Scab [Recovering/Resolving]
  - Pain [Recovering/Resolving]
  - Wound [Unknown]
  - Scar [Unknown]
  - Pain in extremity [Recovered/Resolved]
  - Metrorrhagia [Recovering/Resolving]
  - Peripheral swelling [Unknown]

NARRATIVE: CASE EVENT DATE: 201608
